FAERS Safety Report 11052052 (Version 2)
Quarter: 2015Q2

REPORT INFORMATION
  Report Type: Spontaneous
  Country: US (occurrence: US)
  Receive Date: 20150421
  Receipt Date: 20150515
  Transmission Date: 20150821
  Serious: No
  Sender: FDA-Public Use
  Company Number: US-ASTRAZENECA-2015SE35430

PATIENT
  Sex: Male
  Weight: 86.2 kg

DRUGS (19)
  1. LORATADINE. [Concomitant]
     Active Substance: LORATADINE
     Route: 048
     Dates: start: 2013
  2. METFORMIN [Concomitant]
     Active Substance: METFORMIN HYDROCHLORIDE
     Route: 048
     Dates: start: 2013
  3. MONTELUKAST [Concomitant]
     Active Substance: MONTELUKAST SODIUM
     Route: 048
     Dates: start: 2013
  4. ASPIRIN. [Concomitant]
     Active Substance: ASPIRIN
     Indication: CARDIAC DISORDER
     Route: 048
     Dates: start: 2013
  5. COMBIVENT [Concomitant]
     Active Substance: ALBUTEROL SULFATE\IPRATROPIUM BROMIDE
     Indication: CHRONIC OBSTRUCTIVE PULMONARY DISEASE
     Dosage: 18/103 MCG FOUR TIMES A DAY
     Route: 055
     Dates: start: 2013
  6. PAROXETINE [Concomitant]
     Active Substance: PAROXETINE\PAROXETINE HYDROCHLORIDE
     Route: 048
     Dates: start: 2013
  7. PANTOPRAZOLE [Concomitant]
     Active Substance: PANTOPRAZOLE SODIUM
     Route: 048
     Dates: start: 2013
  8. PRAMIPEXOLE [Concomitant]
     Active Substance: PRAMIPEXOLE
     Route: 048
     Dates: start: 2013
  9. RAMIPRIL 1.25 [Concomitant]
     Dosage: DAILY
     Route: 048
     Dates: start: 2013
  10. SYMBICORT [Suspect]
     Active Substance: BUDESONIDE\FORMOTEROL FUMARATE DIHYDRATE
     Indication: CHRONIC OBSTRUCTIVE PULMONARY DISEASE
     Dosage: 160/4.5MCG, 1 PUFF TWICE A DAY
     Route: 055
  11. GARLIC PILL [Concomitant]
     Dosage: TWO TIMES A DAY
     Route: 048
     Dates: start: 2013
  12. AILOPURINOL [Concomitant]
     Indication: CHRONIC OBSTRUCTIVE PULMONARY DISEASE
     Route: 048
     Dates: start: 2013
  13. OCTOVITE [Concomitant]
     Dosage: TWO TIMES A DAY
     Route: 048
     Dates: start: 2013
  14. GABAPENTIN. [Concomitant]
     Active Substance: GABAPENTIN
     Route: 048
     Dates: start: 2013
  15. METOPROLOL SUBSTITUTE FOR LOPRESSOR [Concomitant]
     Route: 048
     Dates: start: 2013
  16. OXYCODONE ACETAMINOPHEN 7.5/325 [Concomitant]
     Dosage: AS REQUIRED
     Route: 048
     Dates: start: 2013
  17. TIOTROPIURN [Concomitant]
     Route: 048
     Dates: start: 2013
  18. ATORVASTIN [Concomitant]
     Active Substance: ATORVASTATIN
     Indication: DIABETES MELLITUS
     Route: 048
     Dates: start: 2013
  19. ALBUTEROL. [Concomitant]
     Active Substance: ALBUTEROL
     Route: 055
     Dates: start: 2013

REACTIONS (7)
  - Limb injury [Unknown]
  - Intentional product use issue [Unknown]
  - Diabetes mellitus [Unknown]
  - Drug ineffective [Unknown]
  - Gait disturbance [Unknown]
  - Intervertebral disc disorder [Unknown]
  - Intentional product misuse [Unknown]
